FAERS Safety Report 8292182-9 (Version None)
Quarter: 2012Q2

REPORT INFORMATION
  Report Type: 
  Country: None (occurrence: None)
  Receive Date: 20120412
  Receipt Date: 20120328
  Transmission Date: 20120825
  Serious: Yes (Life-Threatening)
  Sender: FDA-Public Use
  Company Number: DSA_56029_2012

PATIENT
  Sex: Female

DRUGS (1)
  1. DILTIAZEM [Suspect]
     Indication: PRODUCT USED FOR UNKNOWN INDICATION
     Dosage: (60 MG, ORAL)
     Route: 048
     Dates: start: 20110801, end: 20111014

REACTIONS (1)
  - HYPERSENSITIVITY [None]
